FAERS Safety Report 10575034 (Version 2)
Quarter: 2014Q4

REPORT INFORMATION
  Report Type: Spontaneous
  Country: CZ (occurrence: CZ)
  Receive Date: 20141111
  Receipt Date: 20141127
  Transmission Date: 20150529
  Serious: Yes (Death)
  Sender: FDA-Public Use
  Company Number: CZ-ROCHE-1487484

PATIENT
  Age: 73 Year
  Sex: Male

DRUGS (7)
  1. ANOPYRIN [Concomitant]
     Active Substance: ASPIRIN
  2. ENELBIN (CZECH REPUBLIC) [Concomitant]
  3. SORBIMON [Concomitant]
  4. MICARDIS [Concomitant]
     Active Substance: TELMISARTAN
  5. ERIVEDGE [Suspect]
     Active Substance: VISMODEGIB
     Indication: BASAL CELL CARCINOMA
     Route: 048
     Dates: start: 20140915, end: 20141101
  6. LOKREN [Concomitant]
     Active Substance: BETAXOLOL HYDROCHLORIDE
  7. MODURETIC 5-50 [Concomitant]
     Active Substance: AMILORIDE HYDROCHLORIDE\HYDROCHLOROTHIAZIDE

REACTIONS (1)
  - Myocardial infarction [Fatal]

NARRATIVE: CASE EVENT DATE: 20141101
